FAERS Safety Report 5595123-8 (Version None)
Quarter: 2008Q1

REPORT INFORMATION
  Report Type: 
  Country: None (occurrence: None)
  Receive Date: 20080117
  Receipt Date: 20071016
  Transmission Date: 20080703
  Serious: Yes (Hospitalization)
  Sender: FDA-Public Use
  Company Number: LB-SANOFI-SYNTHELABO-A01200711710

PATIENT
  Age: 61 Year
  Sex: Male

DRUGS (2)
  1. ASPIRIN [Concomitant]
     Indication: ACUTE CORONARY SYNDROME
     Route: 048
     Dates: start: 20070710, end: 20070815
  2. PLAVIX [Suspect]
     Indication: ACUTE CORONARY SYNDROME
     Route: 048
     Dates: start: 20070710, end: 20070815

REACTIONS (1)
  - CARDIAC OPERATION [None]
